FAERS Safety Report 4615441-7 (Version None)
Quarter: 2005Q1

REPORT INFORMATION
  Report Type: 
  Country: None (occurrence: None)
  Receive Date: 20050322
  Receipt Date: 20050314
  Transmission Date: 20050727
  Serious: Yes (Other)
  Sender: FDA-Public Use
  Company Number: US-ABBOTT-05P-163-0293867-00

PATIENT
  Sex: Female
  Weight: 40.86 kg

DRUGS (8)
  1. HUMIRA [Suspect]
     Indication: RHEUMATOID ARTHRITIS
     Route: 058
     Dates: start: 20050201
  2. RISEDRONATE SODIUM [Suspect]
     Indication: RHEUMATOID ARTHRITIS
     Route: 048
     Dates: start: 20050201, end: 20050201
  3. PROPOXENE [Concomitant]
     Indication: PAIN
  4. DIAZEPAM [Concomitant]
     Indication: DRUG USE FOR UNKNOWN INDICATION
  5. BUMETANIDE [Concomitant]
     Indication: FLUID RETENTION
  6. LEVOTHYROXINE SODIUM [Concomitant]
     Indication: HYPOTHYROIDISM
  7. TRIAZIDONE [Concomitant]
     Indication: INSOMNIA
  8. PREDNISONE [Concomitant]
     Indication: RHEUMATOID ARTHRITIS
     Dates: end: 20050127

REACTIONS (8)
  - ARTHRALGIA [None]
  - CHROMATURIA [None]
  - CONDITION AGGRAVATED [None]
  - HEADACHE [None]
  - NECK PAIN [None]
  - OEDEMA [None]
  - PAIN [None]
  - PRURITUS GENERALISED [None]
